FAERS Safety Report 16722916 (Version 1)
Quarter: 2019Q3

REPORT INFORMATION
  Report Type: Spontaneous
  Country: FI (occurrence: FI)
  Receive Date: 20190821
  Receipt Date: 20190821
  Transmission Date: 20191005
  Serious: Yes (Other)
  Sender: FDA-Public Use
  Company Number: FI-ACCORD-151975

PATIENT
  Age: 48 Year
  Sex: Male

DRUGS (2)
  1. METFOREM [Concomitant]
     Active Substance: METFORMIN HYDROCHLORIDE
     Indication: DIABETES MELLITUS
     Dosage: 1000,MG,DAILY
     Route: 048
  2. CLOZAPINE ACCORD [Suspect]
     Active Substance: CLOZAPINE
     Indication: SCHIZOPHRENIA
     Route: 048
     Dates: start: 201703, end: 201703

REACTIONS (2)
  - Hepatic enzyme increased [Recovered/Resolved]
  - Pulmonary embolism [Recovered/Resolved]
